FAERS Safety Report 8804653 (Version 3)
Quarter: 2013Q1

REPORT INFORMATION
  Report Type: Spontaneous
  Country: US (occurrence: US)
  Receive Date: 20120922
  Receipt Date: 20130109
  Transmission Date: 20140127
  Serious: No
  Sender: FDA-Public Use
  Company Number: US-009507513-1208USA010181

PATIENT
  Age: 62 Year
  Sex: Male
  Weight: 113.83 kg

DRUGS (7)
  1. PEG-INTRON [Suspect]
     Dosage: 150 MICROGRAM, QW
     Route: 058
     Dates: start: 20120531, end: 20120927
  2. VICTRELIS [Suspect]
     Dosage: 2400 MG, QD
     Route: 048
     Dates: start: 20120627, end: 20120927
  3. RIBAVIRIN [Suspect]
     Dosage: 1400 MG, QD
     Route: 048
     Dates: start: 20120531, end: 20120927
  4. DIOVAN [Concomitant]
  5. HYDROCHLOROT [Concomitant]
     Dosage: 12.5 MG, QD
     Route: 048
  6. ADVIL [Concomitant]
  7. BENEFIBER [Concomitant]

REACTIONS (1)
  - Anaemia [Recovering/Resolving]
